FAERS Safety Report 4550883-X (Version None)
Quarter: 2004Q4

REPORT INFORMATION
  Report Type: 
  Country: None (occurrence: None)
  Receive Date: 20041217
  Receipt Date: 20040824
  Transmission Date: 20050328
  Serious: No
  Sender: FDA-Public Use
  Company Number: 2004-BP-06289BP

PATIENT
  Age: 73 Year
  Sex: Male

DRUGS (10)
  1. SPIRIVA [Suspect]
     Indication: CHRONIC OBSTRUCTIVE AIRWAYS DISEASE
     Dosage: 36 MCG (18 MCG, 2 PUFFS DAILY), IH
     Route: 055
     Dates: start: 20040720, end: 20040813
  2. SINEMET [Concomitant]
  3. ALBUTEROL [Concomitant]
  4. PROZAC [Concomitant]
  5. CARAFATE [Concomitant]
  6. ZANTAC [Concomitant]
  7. EPOGEN [Concomitant]
  8. PREVACID [Concomitant]
  9. VITAMIN C (ASCORBIC ACID) [Concomitant]
  10. GUAIFENESIN (GUAIFENESIN) [Concomitant]

REACTIONS (1)
  - PARKINSON'S DISEASE [None]
